FAERS Safety Report 10257645 (Version 1)
Quarter: 2014Q2

REPORT INFORMATION
  Report Type: Spontaneous
  Country: US (occurrence: None)
  Receive Date: 20140623
  Receipt Date: 20140623
  Transmission Date: 20141212
  Serious: No
  Sender: FDA-Public Use
  Company Number: None

PATIENT
  Age: 29 Year
  Sex: Female
  Weight: 47.63 kg

DRUGS (2)
  1. DORYX [Suspect]
     Indication: ACNE
     Dosage: 1/2 PILL DAILY  ONCE DAILY  TAKEN BY MOUTH
     Route: 048
     Dates: start: 20140512, end: 20140621
  2. MULTI-VITAMIN [Concomitant]

REACTIONS (1)
  - Alopecia [None]
